FAERS Safety Report 13884079 (Version 1)
Quarter: 2017Q3

REPORT INFORMATION
  Report Type: Spontaneous
  Country: US (occurrence: US)
  Receive Date: 20170820
  Receipt Date: 20170820
  Transmission Date: 20171127
  Serious: No
  Sender: FDA-Public Use
  Company Number: US-009507513-1707USA007636

PATIENT
  Age: 18 Year
  Sex: Female
  Weight: 74.7 kg

DRUGS (1)
  1. NEXPLANON [Suspect]
     Active Substance: ETONOGESTREL
     Dosage: RIGHT ARM
     Route: 059
     Dates: start: 20141121

REACTIONS (6)
  - Pain [Unknown]
  - Complication associated with device [Recovered/Resolved]
  - Contusion [Unknown]
  - Paraesthesia [Unknown]
  - Hypoaesthesia [Unknown]
  - Device deployment issue [Recovered/Resolved]

NARRATIVE: CASE EVENT DATE: 20141121
